FAERS Safety Report 18019819 (Version 3)
Quarter: 2020Q3

REPORT INFORMATION
  Report Type: Report from Study
  Country: TW (occurrence: TW)
  Receive Date: 20200714
  Receipt Date: 20200907
  Transmission Date: 20201103
  Serious: Yes (Other)
  Sender: FDA-Public Use
  Company Number: NVSC2020TW192884

PATIENT
  Age: 58 Year
  Sex: Female
  Weight: 62 kg

DRUGS (7)
  1. APIXABAN [Concomitant]
     Active Substance: APIXABAN
     Indication: PRODUCT USED FOR UNKNOWN INDICATION
     Dosage: UNK
     Route: 065
  2. PANITUMUMAB [Concomitant]
     Active Substance: PANITUMUMAB
     Indication: PRODUCT USED FOR UNKNOWN INDICATION
     Dosage: 4.6 MG/KG, Q2W
     Route: 065
  3. TRAMADOL. [Concomitant]
     Active Substance: TRAMADOL
     Indication: PRODUCT USED FOR UNKNOWN INDICATION
     Dosage: UNK
     Route: 065
  4. DABRAFENIB [Suspect]
     Active Substance: DABRAFENIB
     Indication: COLON CANCER
     Dosage: 75 MG, BID
     Route: 048
     Dates: start: 20200515, end: 20200710
  5. TRAMETINIB [Suspect]
     Active Substance: TRAMETINIB
     Indication: COLON CANCER
     Dosage: 2 MG, QD
     Route: 048
     Dates: start: 20200515, end: 20200710
  6. SENNOSIDE [Concomitant]
     Active Substance: SENNOSIDES
     Indication: PRODUCT USED FOR UNKNOWN INDICATION
     Dosage: UNK
     Route: 065
  7. FAMOTIDINE. [Concomitant]
     Active Substance: FAMOTIDINE
     Indication: PRODUCT USED FOR UNKNOWN INDICATION
     Dosage: UNK
     Route: 065

REACTIONS (4)
  - Dermatitis acneiform [Recovered/Resolved]
  - Colon cancer [Unknown]
  - Malignant neoplasm progression [Unknown]
  - Pyrexia [Recovered/Resolved]

NARRATIVE: CASE EVENT DATE: 20200601
